FAERS Safety Report 6949766-7 (Version None)
Quarter: 2010Q3

REPORT INFORMATION
  Report Type: 
  Country: None (occurrence: None)
  Receive Date: 20100828
  Receipt Date: 20100111
  Transmission Date: 20110219
  Serious: No
  Sender: FDA-Public Use
  Company Number: US-ABBOTT-10P-163-0619190-00

PATIENT
  Sex: Female

DRUGS (2)
  1. NIASPAN [Suspect]
     Indication: BLOOD CHOLESTEROL INCREASED
     Dosage: AT BEDTIME
     Route: 048
     Dates: start: 20100107, end: 20100108
  2. NIASPAN [Suspect]
     Dosage: AT BEDTIME, FORM STRENGTH: 1000MG, CUTTING PILLS IN HALF
     Route: 048
     Dates: start: 20100104, end: 20100106

REACTIONS (2)
  - RASH [None]
  - WRONG TECHNIQUE IN DRUG USAGE PROCESS [None]
